FAERS Safety Report 4322515-7 (Version None)
Quarter: 2004Q1

REPORT INFORMATION
  Report Type: 
  Country: None (occurrence: None)
  Receive Date: 20040323
  Receipt Date: 20040323
  Transmission Date: 20041129
  Serious: Yes (Life-Threatening, Hospitalization)
  Sender: FDA-Public Use
  Company Number: None

PATIENT
  Sex: Female
  Weight: 55.3388 kg

DRUGS (5)
  1. LEXAPRO [Suspect]
     Indication: DISEASE RECURRENCE
     Dosage: 30 MG 1X IN MORN ORAL
     Route: 048
     Dates: start: 20030315, end: 20040323
  2. LEXAPRO [Suspect]
     Indication: MAJOR DEPRESSION
     Dosage: 30 MG 1X IN MORN ORAL
     Route: 048
     Dates: start: 20030315, end: 20040323
  3. ALEVE [Concomitant]
  4. NASAL DECONGESTANT [Concomitant]
  5. COLD MEDICINES [Concomitant]

REACTIONS (3)
  - PANIC ATTACK [None]
  - SELF INJURIOUS BEHAVIOUR [None]
  - SUICIDE ATTEMPT [None]
